FAERS Safety Report 19441942 (Version 1)
Quarter: 2021Q2

REPORT INFORMATION
  Report Type: Spontaneous
  Country: CH (occurrence: CH)
  Receive Date: 20210621
  Receipt Date: 20210621
  Transmission Date: 20210717
  Serious: Yes (Hospitalization, Other)
  Sender: FDA-Public Use
  Company Number: CH-MACLEODS PHARMACEUTICALS US LTD-MAC2021031571

PATIENT

DRUGS (2)
  1. LIDOCAINE. [Suspect]
     Active Substance: LIDOCAINE
     Indication: INFILTRATION ANAESTHESIA
     Dosage: UNK, (0.030 G/100 ML)
     Route: 065
  2. PRILOCAINE [Suspect]
     Active Substance: PRILOCAINE
     Indication: INFILTRATION ANAESTHESIA
     Dosage: UNK, 0.025 G/100 ML
     Route: 065

REACTIONS (7)
  - Presyncope [Recovering/Resolving]
  - Methaemoglobinaemia [Recovering/Resolving]
  - Skin laceration [Recovered/Resolved]
  - Radius fracture [Recovered/Resolved]
  - Fall [Recovering/Resolving]
  - Haemorrhage [Recovered/Resolved]
  - Cyanosis [Recovering/Resolving]
